FAERS Safety Report 21985434 (Version 1)
Quarter: 2023Q1

REPORT INFORMATION
  Report Type: Report from Study
  Country: DE (occurrence: DE)
  Receive Date: 20230213
  Receipt Date: 20230213
  Transmission Date: 20230418
  Serious: Yes (Hospitalization)
  Sender: FDA-Public Use
  Company Number: DE-MYLANLABS-2023M1015126

PATIENT
  Sex: Male
  Weight: 78 kg

DRUGS (1)
  1. HULIO [Suspect]
     Active Substance: ADALIMUMAB-FKJP
     Indication: Psoriasis
     Dosage: UNK, HULIO 40MG /0.8ML
     Route: 065
     Dates: start: 20190108

REACTIONS (1)
  - Exostosis [Recovered/Resolved]

NARRATIVE: CASE EVENT DATE: 20221017
